FAERS Safety Report 9270205 (Version 1)
Quarter: 2013Q2

REPORT INFORMATION
  Report Type: Spontaneous
  Country: GB (occurrence: GB)
  Receive Date: 20130503
  Receipt Date: 20130503
  Transmission Date: 20140414
  Serious: Yes (Other)
  Sender: FDA-Public Use
  Company Number: GB-GLAXOSMITHKLINE-B0887112A

PATIENT
  Age: 13 Year
  Sex: Female
  Weight: 52 kg

DRUGS (2)
  1. MALARONE [Suspect]
     Indication: MALARIA PROPHYLAXIS
     Route: 048
     Dates: start: 20130322, end: 20130414
  2. AMOXYCILLIN [Concomitant]
     Indication: EAR INFECTION
     Dates: start: 20130321

REACTIONS (5)
  - Mouth ulceration [Not Recovered/Not Resolved]
  - Pyrexia [Recovered/Resolved]
  - Urticaria [Not Recovered/Not Resolved]
  - Oropharyngeal pain [Not Recovered/Not Resolved]
  - Headache [Unknown]
